FAERS Safety Report 18194045 (Version 5)
Quarter: 2020Q4

REPORT INFORMATION
  Report Type: Spontaneous
  Country: FR (occurrence: FR)
  Receive Date: 20200825
  Receipt Date: 20201119
  Transmission Date: 20210113
  Serious: Yes (Other)
  Sender: FDA-Public Use
  Company Number: NVSC2020FR220885

PATIENT
  Age: 17 Year
  Sex: Male
  Weight: 45.6 kg

DRUGS (2)
  1. IMATINIB. [Suspect]
     Active Substance: IMATINIB MESYLATE
     Indication: CROHN^S DISEASE
     Dosage: 400 MG, QD
     Route: 048
  2. MESALAZINE [Suspect]
     Active Substance: MESALAMINE
     Indication: CROHN^S DISEASE
     Dosage: UNK
     Route: 065

REACTIONS (8)
  - Varicella zoster virus infection [Unknown]
  - Infection reactivation [Unknown]
  - Diarrhoea [Recovered/Resolved]
  - Therapy non-responder [Unknown]
  - Off label use [Unknown]
  - Crohn^s disease [Unknown]
  - Drug intolerance [Recovered/Resolved]
  - Nausea [Recovered/Resolved]
